FAERS Safety Report 21012599 (Version 3)
Quarter: 2024Q4

REPORT INFORMATION
  Report Type: Spontaneous
  Country: US (occurrence: US)
  Receive Date: 20220627
  Receipt Date: 20241106
  Transmission Date: 20250115
  Serious: Yes (Other)
  Sender: BIOMARIN
  Company Number: US-SA-2022SA218717

PATIENT

DRUGS (4)
  1. LARONIDASE [Suspect]
     Active Substance: LARONIDASE
     Indication: Mucopolysaccharidosis I
     Dosage: 2.09 MG, QW
     Route: 042
     Dates: start: 20220523
  2. LARONIDASE [Suspect]
     Active Substance: LARONIDASE
     Dosage: 2.9 UNK
     Route: 042
     Dates: start: 20220601
  3. LARONIDASE [Suspect]
     Active Substance: LARONIDASE
     Dosage: 2.9 MG, QW
     Route: 042
     Dates: start: 20220606
  4. LARONIDASE [Suspect]
     Active Substance: LARONIDASE
     Dosage: 8.7 (UNITS NOT PROVIDED), QW
     Route: 042

REACTIONS (3)
  - Haematochezia [Recovered/Resolved]
  - Deafness bilateral [Unknown]
  - Blindness [Unknown]

NARRATIVE: CASE EVENT DATE: 20220603
